FAERS Safety Report 15566380 (Version 1)
Quarter: 2018Q4

REPORT INFORMATION
  Report Type: Spontaneous
  Country: US (occurrence: US)
  Receive Date: 20181025
  Receipt Date: 20181025
  Transmission Date: 20190205
  Serious: No
  Sender: FDA-Public Use
  Company Number: None

PATIENT
  Age: 46 Year
  Sex: Female

DRUGS (3)
  1. TAXOL [Concomitant]
     Active Substance: PACLITAXEL
  2. PERJETA HERCEPTIN [Concomitant]
  3. TAMOXIFEN CITRATE 20MG [Suspect]
     Active Substance: TAMOXIFEN CITRATE
     Route: 048
     Dates: start: 201809

REACTIONS (2)
  - Neoplasm progression [None]
  - Neoplasm skin [None]

NARRATIVE: CASE EVENT DATE: 20181024
